FAERS Safety Report 20204172 (Version 2)
Quarter: 2022Q1

REPORT INFORMATION
  Report Type: Spontaneous
  Country: NL (occurrence: NL)
  Receive Date: 20211220
  Receipt Date: 20220224
  Transmission Date: 20220423
  Serious: Yes (Hospitalization, Other)
  Sender: FDA-Public Use
  Company Number: NL-SA-SAC20211215000386

PATIENT
  Sex: Male

DRUGS (6)
  1. MYOZYME [Suspect]
     Active Substance: ALGLUCOSIDASE ALFA
     Indication: Glycogen storage disease type II
     Dosage: 1452 MG, QOW
     Route: 042
     Dates: start: 20210722
  2. CANDESARTAN [Concomitant]
     Active Substance: CANDESARTAN
     Indication: Premedication
     Dosage: 1DD16MG
  3. LERCANIDIPINE [Concomitant]
     Active Substance: LERCANIDIPINE
     Indication: Premedication
     Dosage: 1DD20MG
  4. NITROFURANTOIN [Concomitant]
     Active Substance: NITROFURANTOIN
     Indication: Premedication
     Dosage: 1D50MG
  5. SOLIFENACIN/TAMSULOSIN [Concomitant]
     Indication: Premedication
     Dosage: 1DD6/0,4MG
  6. TRIPTORELIN [Concomitant]
     Active Substance: TRIPTORELIN
     Indication: Premedication
     Dosage: 1X6MONTHS 22,5MG

REACTIONS (9)
  - Circulatory collapse [Recovered/Resolved]
  - Sinus bradycardia [Recovered/Resolved]
  - Heart rate decreased [Recovered/Resolved]
  - Malaise [Recovered/Resolved]
  - Loss of consciousness [Recovered/Resolved]
  - Presyncope [Recovered/Resolved]
  - Dyspnoea [Recovered/Resolved]
  - Hypotension [Recovered/Resolved]
  - Oxygen saturation decreased [Recovered/Resolved]

NARRATIVE: CASE EVENT DATE: 20211125
